FAERS Safety Report 4924416-X (Version None)
Quarter: 2006Q1

REPORT INFORMATION
  Report Type: 
  Country: None (occurrence: None)
  Receive Date: 20060227
  Receipt Date: 20060217
  Transmission Date: 20060701
  Serious: Yes (Other)
  Sender: FDA-Public Use
  Company Number: US-ROCHE-437291

PATIENT
  Age: 55 Year
  Sex: Female

DRUGS (2)
  1. PEGASYS [Suspect]
     Dosage: ROUTE REPORTED AS INJECTABLE.
     Route: 050
     Dates: start: 20060205
  2. COPEGUS [Suspect]
     Route: 048
     Dates: start: 20060205

REACTIONS (2)
  - CONTUSION [None]
  - THROMBOSIS [None]
